FAERS Safety Report 12570318 (Version 2)
Quarter: 2016Q3

REPORT INFORMATION
  Report Type: Spontaneous
  Country: RO (occurrence: RO)
  Receive Date: 20160719
  Receipt Date: 20160725
  Transmission Date: 20161109
  Serious: Yes (Other)
  Sender: FDA-Public Use
  Company Number: RO-PFIZER INC-2016345233

PATIENT
  Age: 70 Year
  Sex: Female

DRUGS (5)
  1. TROMBOSTOP [Concomitant]
     Dosage: UNK
  2. CORDARONE [Suspect]
     Active Substance: AMIODARONE HYDROCHLORIDE
     Indication: ATRIAL FIBRILLATION
     Dosage: 200 MG, DAILY
     Route: 048
     Dates: start: 20160401, end: 20160506
  3. NITROMINT [Concomitant]
     Dosage: UNK
  4. COUMADIN [Concomitant]
     Active Substance: WARFARIN SODIUM
     Dosage: UNK
  5. DIGOXIN. [Concomitant]
     Active Substance: DIGOXIN
     Dosage: UNK

REACTIONS (4)
  - Cardiac disorder [Unknown]
  - Spider vein [Unknown]
  - Joint swelling [Unknown]
  - Thyroxine free increased [Unknown]

NARRATIVE: CASE EVENT DATE: 20160506
